FAERS Safety Report 7053974-7 (Version None)
Quarter: 2010Q4

REPORT INFORMATION
  Report Type: 
  Country: None (occurrence: None)
  Receive Date: 20101015
  Receipt Date: 20100930
  Transmission Date: 20110411
  Serious: Yes (Other)
  Sender: FDA-Public Use
  Company Number: IDA-00443

PATIENT
  Age: 55 Year
  Sex: Female

DRUGS (1)
  1. INDERAL [Suspect]
     Indication: MITRAL VALVE INCOMPETENCE
     Dosage: .5 DF DAILY ORAL FORMULATION: TABLET / 1 DF DAILY ORAL FORMULATION: TABLET
     Route: 048
     Dates: start: 19980101, end: 20090101

REACTIONS (6)
  - FATIGUE [None]
  - HYPOTHYROIDISM [None]
  - MITRAL VALVE DISEASE [None]
  - PALPITATIONS [None]
  - UTERINE POLYP [None]
  - VAGINAL HAEMORRHAGE [None]
